FAERS Safety Report 11327717 (Version 1)
Quarter: 2015Q3

REPORT INFORMATION
  Report Type: Spontaneous
  Country: US (occurrence: US)
  Receive Date: 20150731
  Receipt Date: 20150731
  Transmission Date: 20151125
  Serious: No
  Sender: FDA-Public Use
  Company Number: PHEH2015US014427

PATIENT
  Sex: Male

DRUGS (1)
  1. TEGRETOL [Suspect]
     Active Substance: CARBAMAZEPINE
     Indication: PAIN IN JAW
     Dosage: 100 MG, BID
     Route: 065

REACTIONS (2)
  - Hypoacusis [Unknown]
  - Drug ineffective [Unknown]
